FAERS Safety Report 9748734 (Version 1)
Quarter: 2013Q4

REPORT INFORMATION
  Report Type: Report from Study
  Country: LB (occurrence: LB)
  Receive Date: 20131212
  Receipt Date: 20131212
  Transmission Date: 20140711
  Serious: Yes (Hospitalization)
  Sender: FDA-Public Use
  Company Number: LB-SA-2013SA129106

PATIENT
  Sex: Female

DRUGS (7)
  1. LANTUS SOLOSTAR [Suspect]
     Indication: DIABETES MELLITUS
     Dosage: DOSE:30 UNIT(S)
     Route: 058
     Dates: start: 2011
  2. AMARYL [Concomitant]
     Indication: DIABETES MELLITUS
     Route: 048
  3. GLUCOPHAGE [Concomitant]
     Indication: DIABETES MELLITUS
     Route: 048
  4. COAPROVEL [Concomitant]
     Route: 048
  5. DOXIUM [Concomitant]
     Route: 048
  6. CONCOR [Concomitant]
     Route: 048
  7. ATORVASTATIN [Concomitant]
     Route: 048

REACTIONS (1)
  - Angina pectoris [Recovered/Resolved]
